FAERS Safety Report 9913577 (Version 1)
Quarter: 2014Q1

REPORT INFORMATION
  Report Type: Spontaneous
  Country: US (occurrence: None)
  Receive Date: 20140218
  Receipt Date: 20140218
  Transmission Date: 20141002
  Serious: Yes (Hospitalization)
  Sender: FDA-Public Use
  Company Number: None

PATIENT
  Age: 67 Year
  Sex: Male

DRUGS (2)
  1. MORPHINE [Suspect]
     Indication: PAIN
     Route: 048
     Dates: start: 20140102, end: 20140201
  2. MORPHINE [Suspect]
     Indication: PAIN
     Route: 048
     Dates: start: 20140102, end: 20140201

REACTIONS (5)
  - Tremor [None]
  - Respiratory rate increased [None]
  - Respiratory acidosis [None]
  - Somnolence [None]
  - Slow speech [None]
